FAERS Safety Report 6007896-0 (Version None)
Quarter: 2008Q4

REPORT INFORMATION
  Report Type: 
  Country: None (occurrence: None)
  Receive Date: 20081217
  Receipt Date: 20080710
  Transmission Date: 20090506
  Serious: No
  Sender: FDA-Public Use
  Company Number: US-ASTRAZENECA-2008UW13865

PATIENT
  Age: 78 Year
  Sex: Female
  Weight: 66.7 kg

DRUGS (4)
  1. CRESTOR [Suspect]
     Indication: BLOOD CHOLESTEROL INCREASED
     Route: 048
     Dates: start: 20080501
  2. SYNTHROID [Concomitant]
  3. ADVAIR DISKUS 250/50 [Concomitant]
  4. TYLENOL (CAPLET) [Concomitant]

REACTIONS (4)
  - HEADACHE [None]
  - HIGH DENSITY LIPOPROTEIN INCREASED [None]
  - MYALGIA [None]
  - TENSION [None]
